FAERS Safety Report 4311503-2 (Version None)
Quarter: 2004Q1

REPORT INFORMATION
  Report Type: 
  Country: None (occurrence: None)
  Receive Date: 20040303
  Receipt Date: 20040303
  Transmission Date: 20041129
  Serious: Yes (Hospitalization)
  Sender: FDA-Public Use
  Company Number: None

PATIENT
  Age: 62 Year
  Sex: Male
  Weight: 119 kg

DRUGS (9)
  1. WARFARIN SODIUM [Suspect]
     Indication: ANTITHROMBIN III DEFICIENCY
     Dosage: 5 MG DAILY ORAL
     Route: 048
  2. WARFARIN SODIUM [Suspect]
     Indication: CEREBROVASCULAR ACCIDENT
     Dosage: 5 MG DAILY ORAL
     Route: 048
  3. FOSINOPRIL SODIUM [Concomitant]
  4. FUROSEMIDE [Concomitant]
  5. LEVOTHYROXINE SODIUM [Concomitant]
  6. SERTRALINE HCL [Concomitant]
  7. SIMVASTATIN [Concomitant]
  8. SILDENAFIL [Concomitant]
  9. COLCHICINE [Concomitant]

REACTIONS (4)
  - CHILLS [None]
  - COUGH [None]
  - HAEMOPTYSIS [None]
  - PYREXIA [None]
